FAERS Safety Report 13118120 (Version 7)
Quarter: 2017Q3

REPORT INFORMATION
  Report Type: Spontaneous
  Country: US (occurrence: US)
  Receive Date: 20170116
  Receipt Date: 20170810
  Transmission Date: 20171127
  Serious: Yes (Other)
  Sender: FDA-Public Use
  Company Number: US-BAYER-2017-007240

PATIENT
  Age: 31 Year
  Sex: Female
  Weight: 55.78 kg

DRUGS (2)
  1. MIRENA [Suspect]
     Active Substance: LEVONORGESTREL
     Indication: CONTRACEPTION
     Dosage: 20 MCG/24HR, CONT
     Route: 015
     Dates: start: 20120402, end: 20170210
  2. MIRENA [Suspect]
     Active Substance: LEVONORGESTREL
     Indication: CONTRACEPTION
     Dosage: 20 MCG/24HR, CONT
     Route: 015

REACTIONS (28)
  - Weight increased [None]
  - Hormone level abnormal [None]
  - Fluid retention [None]
  - Nausea [None]
  - Embedded device [Recovered/Resolved]
  - Mood altered [None]
  - Adjustment disorder with depressed mood [None]
  - Breast swelling [None]
  - Drug ineffective [None]
  - Migraine [None]
  - Personality change [None]
  - Cardiovascular disorder [None]
  - Blood oestrogen increased [None]
  - Galactorrhoea [None]
  - Acne [None]
  - Ectopic pregnancy with contraceptive device [Not Recovered/Not Resolved]
  - Genital haemorrhage [Not Recovered/Not Resolved]
  - Abdominal pain lower [Not Recovered/Not Resolved]
  - Fatigue [None]
  - Breast tenderness [None]
  - Device difficult to use [None]
  - Abdominal distension [None]
  - Insomnia [None]
  - Breast pain [None]
  - Dyspareunia [None]
  - Loss of libido [None]
  - Anxiety [None]
  - Alopecia [None]

NARRATIVE: CASE EVENT DATE: 201612
